FAERS Safety Report 5093572-8 (Version None)
Quarter: 2006Q3

REPORT INFORMATION
  Report Type: 
  Country: None (occurrence: None)
  Receive Date: 20060829
  Receipt Date: 20060810
  Transmission Date: 20061208
  Serious: Yes (Hospitalization)
  Sender: FDA-Public Use
  Company Number: US200608002505

PATIENT
  Age: 68 Year
  Sex: Female

DRUGS (8)
  1. CYMBALTA [Suspect]
     Dosage: 30 MG, DAILY (1/D)
  2. CIALIS [Concomitant]
  3. TRAZODIL (TRAZODONE HYDROCHLORIDE) [Concomitant]
  4. PREDNISONE TAB [Concomitant]
  5. METHOTREXATE [Concomitant]
  6. NIFEDIPINE [Concomitant]
  7. FOLIC ACID [Concomitant]
  8. ANGIOMAX [Concomitant]

REACTIONS (2)
  - CARDIAC TAMPONADE [None]
  - DYSPNOEA [None]
